FAERS Safety Report 15765286 (Version 1)
Quarter: 2018Q4

REPORT INFORMATION
  Report Type: Spontaneous
  Country: US (occurrence: US)
  Receive Date: 20181207
  Receipt Date: 20181207
  Transmission Date: 20190205
  Serious: Yes (Other)
  Sender: FDA-Public Use
  Company Number: None

PATIENT
  Age: 62 Year
  Sex: Female
  Weight: 72 kg

DRUGS (5)
  1. TEVA ACTAVIS (CLONAZEPAM) [Suspect]
     Active Substance: CLONAZEPAM
     Indication: ANXIETY
     Dosage: ?          QUANTITY:1 TABLET(S);?
     Route: 048
     Dates: start: 20181203
  2. TEVA ACTAVIS (CLONAZEPAM) [Suspect]
     Active Substance: CLONAZEPAM
     Indication: POST-TRAUMATIC STRESS DISORDER
     Dosage: ?          QUANTITY:1 TABLET(S);?
     Route: 048
     Dates: start: 20181203
  3. CALM MAGNESIUM [Concomitant]
  4. TEVA ACTAVIS (CLONAZEPAM) [Suspect]
     Active Substance: CLONAZEPAM
     Indication: PANIC ATTACK
     Dosage: ?          QUANTITY:1 TABLET(S);?
     Route: 048
     Dates: start: 20181203
  5. GREEN VIBRANCE [Concomitant]

REACTIONS (9)
  - Drug ineffective [None]
  - Nausea [None]
  - Dizziness [None]
  - Withdrawal syndrome [None]
  - Condition aggravated [None]
  - Sleep disorder [None]
  - Anxiety [None]
  - Product substitution issue [None]
  - Economic problem [None]

NARRATIVE: CASE EVENT DATE: 20181203
